FAERS Safety Report 17017427 (Version 2)
Quarter: 2019Q4

REPORT INFORMATION
  Report Type: Report from Study
  Country: DE (occurrence: DE)
  Receive Date: 20191111
  Receipt Date: 20191125
  Transmission Date: 20200122
  Serious: Yes (Other)
  Sender: FDA-Public Use
  Company Number: DE-PFIZER INC-2019157082

PATIENT
  Age: 30 Year
  Sex: Female
  Weight: 74 kg

DRUGS (3)
  1. APIXABAN [Suspect]
     Active Substance: APIXABAN
     Indication: EMBOLISM VENOUS
     Dosage: UNK
     Route: 065
  2. FRAGMIN [Suspect]
     Active Substance: DALTEPARIN SODIUM
     Indication: ANTICOAGULANT THERAPY
     Dosage: 1 DOSAGE FORM (1 DF=2.500 UNITS NOT SPECIFIED)
     Route: 065
  3. APIXABAN [Suspect]
     Active Substance: APIXABAN
     Indication: ANTICOAGULANT THERAPY
     Dosage: 10 MILLIGRAM, BID
     Route: 048
     Dates: start: 20180406, end: 20180731

REACTIONS (7)
  - Paraesthesia [Unknown]
  - Vaginal haemorrhage [Unknown]
  - Phlebitis [Unknown]
  - Pain in extremity [Unknown]
  - Intentional product use issue [Unknown]
  - Metrorrhagia [Unknown]
  - Maternal exposure during pregnancy [Recovered/Resolved]

NARRATIVE: CASE EVENT DATE: 20181031
